FAERS Safety Report 9169716 (Version 2)
Quarter: 2013Q2

REPORT INFORMATION
  Report Type: Spontaneous
  Country: JP (occurrence: JP)
  Receive Date: 20130318
  Receipt Date: 20130417
  Transmission Date: 20140414
  Serious: Yes (Hospitalization, Other)
  Sender: FDA-Public Use
  Company Number: PHHY2013JP025777

PATIENT
  Age: 68 Year
  Sex: Female

DRUGS (1)
  1. SYMMETREL [Suspect]
     Indication: TREMOR
     Dosage: 100 MG, DAILY
     Route: 048

REACTIONS (7)
  - Toxicity to various agents [Recovered/Resolved]
  - Neurosis [Recovered/Resolved]
  - Hallucination, visual [Recovered/Resolved]
  - Delusion [Recovered/Resolved]
  - Malaise [Recovered/Resolved]
  - Decreased appetite [Recovered/Resolved]
  - Azotaemia [Recovered/Resolved]
